FAERS Safety Report 7995171-4 (Version None)
Quarter: 2011Q4

REPORT INFORMATION
  Report Type: 
  Country: None (occurrence: None)
  Receive Date: 20111217
  Receipt Date: 20111217
  Transmission Date: 20120403
  Serious: Yes (Hospitalization)
  Sender: FDA-Public Use
  Company Number: None

PATIENT
  Age: 69 Year
  Sex: Male
  Weight: 84.5 kg

DRUGS (1)
  1. MEGESTROL ACETATE [Suspect]
     Indication: MALNUTRITION
     Dosage: 40 MG EVERY DAY PO
     Route: 048
     Dates: start: 20110404, end: 20110623

REACTIONS (2)
  - DEEP VEIN THROMBOSIS [None]
  - PHLEBITIS [None]
